FAERS Safety Report 17436894 (Version 1)
Quarter: 2020Q1

REPORT INFORMATION
  Report Type: Spontaneous
  Country: US (occurrence: US)
  Receive Date: 20200219
  Receipt Date: 20200219
  Transmission Date: 20200409
  Serious: Yes (Hospitalization)
  Sender: FDA-Public Use
  Company Number: US-LEXICON PHARMACEUTICALS, INC-20-1606-00121

PATIENT
  Age: 66 Year
  Sex: Female

DRUGS (14)
  1. SANDOSTATIN [Concomitant]
     Active Substance: OCTREOTIDE ACETATE
  2. COMPAZINE [Concomitant]
     Active Substance: PROCHLORPERAZINE MALEATE
  3. NORCO [Concomitant]
     Active Substance: ACETAMINOPHEN\HYDROCODONE BITARTRATE
  4. NOVOLOG [Concomitant]
     Active Substance: INSULIN ASPART
  5. TOPROL XL [Concomitant]
     Active Substance: METOPROLOL SUCCINATE
  6. LYRICA [Concomitant]
     Active Substance: PREGABALIN
  7. SYNTHROID [Concomitant]
     Active Substance: LEVOTHYROXINE SODIUM
  8. CREON [Concomitant]
     Active Substance: PANCRELIPASE AMYLASE\PANCRELIPASE LIPASE\PANCRELIPASE PROTEASE
  9. XERMELO [Suspect]
     Active Substance: TELOTRISTAT ETHYL
     Indication: CARCINOID TUMOUR OF THE SMALL BOWEL
     Dates: start: 20170412
  10. CALCIUM [Concomitant]
     Active Substance: CALCIUM
  11. FISH OIL [Concomitant]
     Active Substance: FISH OIL
  12. ASPIRIN. [Concomitant]
     Active Substance: ASPIRIN
  13. LIOTHYRONINE [Concomitant]
     Active Substance: LIOTHYRONINE
  14. THERALITH XR [Concomitant]

REACTIONS (1)
  - Hypoglycaemic unconsciousness [Unknown]

NARRATIVE: CASE EVENT DATE: 20191225
